FAERS Safety Report 17048250 (Version 1)
Quarter: 2019Q4

REPORT INFORMATION
  Report Type: Spontaneous
  Country: DE (occurrence: DE)
  Receive Date: 20191119
  Receipt Date: 20191119
  Transmission Date: 20200122
  Serious: Yes (Other)
  Sender: FDA-Public Use
  Company Number: DE-MYLANLABS-2019M1109369

PATIENT
  Sex: Male

DRUGS (2)
  1. VALSACOR COMP [Concomitant]
     Active Substance: HYDROCHLOROTHIAZIDE\VALSARTAN
     Indication: PRODUCT USED FOR UNKNOWN INDICATION
     Dosage: 160 MILLIGRAM
     Route: 065
     Dates: start: 20170703
  2. HYDROCHLOROTHIAZIDE,VALSARTAN MYLAN [Suspect]
     Active Substance: HYDROCHLOROTHIAZIDE\VALSARTAN
     Indication: PRODUCT USED FOR UNKNOWN INDICATION
     Dosage: 1 DF, QD (160 MG OF VALSARTAN AND 12.5 MG OF HYDROCHLOROTHIAZIDE)
     Route: 065
     Dates: start: 20150618, end: 2018

REACTIONS (3)
  - Fear [Unknown]
  - Testicular cyst [Unknown]
  - Renal cyst [Unknown]
